FAERS Safety Report 21148922 (Version 3)
Quarter: 2023Q2

REPORT INFORMATION
  Report Type: Spontaneous
  Country: US (occurrence: US)
  Receive Date: 20220729
  Receipt Date: 20230510
  Transmission Date: 20230721
  Serious: Yes (Other)
  Sender: FDA-Public Use
  Company Number: US-PFIZER INC-PV202200032351

PATIENT
  Age: 55 Year
  Sex: Female

DRUGS (7)
  1. XELJANZ XR [Suspect]
     Active Substance: TOFACITINIB CITRATE
     Dosage: 11 MG, 1X/DAY
     Route: 048
  2. FERROUS GLUCONATE [Concomitant]
     Active Substance: FERROUS GLUCONATE
     Dosage: UNK (324(37.5))
  3. COLLAGEN [Concomitant]
     Active Substance: COLLAGEN
     Dosage: UNK (125-740MG)
  4. OMEGA-3 FATTY ACIDS [Concomitant]
     Active Substance: OMEGA-3 FATTY ACIDS
     Dosage: UNK (684-1200MG)
  5. CALCIUM D3+K1 [Concomitant]
     Dosage: UNK
  6. HMB [Concomitant]
     Dosage: UNK (2000 SUPPLEMENT)
  7. FISH OIL [Concomitant]
     Active Substance: FISH OIL
     Dosage: UNK (684-1200MG)

REACTIONS (4)
  - Wrist surgery [Unknown]
  - Ankylosing spondylitis [Not Recovered/Not Resolved]
  - Drug ineffective [Not Recovered/Not Resolved]
  - Arthralgia [Recovered/Resolved]
